FAERS Safety Report 22085905 (Version 1)
Quarter: 2023Q1

REPORT INFORMATION
  Report Type: Spontaneous
  Country: US (occurrence: None)
  Receive Date: 20230310
  Receipt Date: 20230310
  Transmission Date: 20230417
  Serious: No
  Sender: FDA-Public Use
  Company Number: None

PATIENT
  Sex: Male

DRUGS (1)
  1. HUMIRA [Suspect]
     Active Substance: ADALIMUMAB
     Indication: Hidradenitis
     Dosage: 80MG  EVERY 14 DAYS SQ?
     Route: 058
     Dates: start: 202203

REACTIONS (3)
  - Drug effect less than expected [None]
  - Cyst [None]
  - Disease progression [None]
